FAERS Safety Report 23586816 (Version 1)
Quarter: 2024Q1

REPORT INFORMATION
  Report Type: Report from Study
  Country: ZA (occurrence: ZA)
  Receive Date: 20240301
  Receipt Date: 20240301
  Transmission Date: 20240410
  Serious: Yes (Hospitalization, Other)
  Sender: FDA-Public Use
  Company Number: ZA-AstraZeneca-2022A195613

PATIENT
  Age: 12 Week
  Sex: Female
  Weight: 2.6 kg

DRUGS (1)
  1. SYNAGIS [Suspect]
     Active Substance: PALIVIZUMAB
     Indication: Antiviral prophylaxis
     Dosage: MONTHLY
     Route: 030
     Dates: start: 20220330

REACTIONS (1)
  - Neonatal dyspnoea [Unknown]

NARRATIVE: CASE EVENT DATE: 20220512
